FAERS Safety Report 15680777 (Version 5)
Quarter: 2019Q2

REPORT INFORMATION
  Report Type: Report from Study
  Country: IL (occurrence: IL)
  Receive Date: 20181203
  Receipt Date: 20190403
  Transmission Date: 20190711
  Serious: Yes (Hospitalization)
  Sender: FDA-Public Use
  Company Number: IL-JNJFOC-20181133908

PATIENT
  Age: 16 Year
  Sex: Female

DRUGS (1)
  1. SIMPONI [Suspect]
     Active Substance: GOLIMUMAB
     Indication: RHEUMATOID ARTHRITIS
     Route: 058
     Dates: start: 20180927

REACTIONS (5)
  - Tracheal obstruction [Recovering/Resolving]
  - Injection site haemorrhage [Recovered/Resolved]
  - Tonsillar hypertrophy [Recovering/Resolving]
  - Infectious mononucleosis [Recovered/Resolved]
  - Injection site pain [Recovered/Resolved]

NARRATIVE: CASE EVENT DATE: 2018
